FAERS Safety Report 6290704-0 (Version None)
Quarter: 2009Q3

REPORT INFORMATION
  Report Type: 
  Country: None (occurrence: None)
  Receive Date: 20090727
  Receipt Date: 20090123
  Transmission Date: 20100115
  Serious: Yes (Hospitalization)
  Sender: FDA-Public Use
  Company Number: OMPQ-PR-0901S-0036

PATIENT

DRUGS (2)
  1. OMNIPAQUE 300 [Suspect]
     Indication: ACUTE CORONARY SYNDROME
     Dosage: 150 ML, SINGLE DOSE
     Dates: start: 20081027, end: 20081027
  2. VISIPAQUE [Suspect]
     Indication: ACUTE CORONARY SYNDROME
     Dosage: 50 ML, SINGLE DOSE
     Dates: start: 20081027, end: 20081027

REACTIONS (1)
  - RENAL FAILURE ACUTE [None]
